FAERS Safety Report 15437155 (Version 1)
Quarter: 2018Q4

REPORT INFORMATION
  Report Type: Spontaneous
  Country: US (occurrence: US)
  Receive Date: 20180927
  Receipt Date: 20180927
  Transmission Date: 20190204
  Serious: Yes (Other)
  Sender: FDA-Public Use
  Company Number: US-MATRIXX INITIATIVES, INC.-2055441

PATIENT
  Age: 59 Year
  Sex: Female
  Weight: 61.36 kg

DRUGS (7)
  1. VITAMINS [Concomitant]
     Active Substance: VITAMINS
  2. AMLODIPINE [Concomitant]
     Active Substance: AMLODIPINE BESYLATE
  3. ALBUTEROL NEBULIZER [Concomitant]
     Active Substance: ALBUTEROL
  4. ZICAM COLD REMEDY NASAL SPRAY [Suspect]
     Active Substance: HOMEOPATHICS
     Route: 045
     Dates: start: 20180918, end: 20180918
  5. BREO ELLIPTA [Concomitant]
     Active Substance: FLUTICASONE FUROATE\VILANTEROL TRIFENATATE
  6. ALBUTEROL INHALER [Concomitant]
     Active Substance: ALBUTEROL
  7. CALCIUM [Concomitant]
     Active Substance: CALCIUM

REACTIONS (7)
  - Sinusitis [None]
  - Asthma [None]
  - Wheezing [None]
  - Oropharyngeal pain [None]
  - Gastrooesophageal reflux disease [None]
  - Chest discomfort [None]
  - Dyspnoea [None]
